FAERS Safety Report 8790882 (Version 1)
Quarter: 2012Q4

REPORT INFORMATION
  Report Type: 
  Country: US (occurrence: None)
  Receive Date: 20120913
  Receipt Date: 20120913
  Transmission Date: 20130627
  Serious: Yes (Hospitalization)
  Sender: FDA-Public Use
  Company Number: None

PATIENT
  Sex: Male
  Weight: 66.8 kg

DRUGS (2)
  1. CISPLATIN [Suspect]
     Dates: start: 20120820
  2. PACLITAXEL (TAXOL) [Suspect]
     Dates: start: 20120820

REACTIONS (13)
  - Dehydration [None]
  - Neutropenia [None]
  - Urine flow decreased [None]
  - Dyspnoea [None]
  - Dysphagia [None]
  - Renal failure acute [None]
  - Atrial fibrillation [None]
  - Cardiac failure congestive [None]
  - Hypotension [None]
  - Staphylococcus test positive [None]
  - Pseudomonas test positive [None]
  - Frequent bowel movements [None]
  - Dilatation ventricular [None]
